FAERS Safety Report 4573847-9 (Version None)
Quarter: 2005Q1

REPORT INFORMATION
  Report Type: 
  Country: None (occurrence: None)
  Receive Date: 20050203
  Receipt Date: 20050124
  Transmission Date: 20050727
  Serious: Yes (Hospitalization)
  Sender: FDA-Public Use
  Company Number: 2005019220

PATIENT
  Sex: Male

DRUGS (1)
  1. BENADRYL [Suspect]
     Dosage: 800 MG 3 TIMES DAILY, ORAL
     Route: 048

REACTIONS (1)
  - OEDEMA [None]
